FAERS Safety Report 18579937 (Version 1)
Quarter: 2020Q4

REPORT INFORMATION
  Report Type: Spontaneous
  Country: IN (occurrence: IN)
  Receive Date: 20201204
  Receipt Date: 20201204
  Transmission Date: 20210114
  Serious: Yes (Hospitalization)
  Sender: FDA-Public Use
  Company Number: IN-LUPIN LIMITED-2020-09615

PATIENT
  Age: 40 Year
  Sex: Male

DRUGS (4)
  1. MIDAZOLAM. [Suspect]
     Active Substance: MIDAZOLAM
     Indication: DYSPHONIA
     Dosage: UNK
     Route: 065
  2. ESCITALOPRAM [Suspect]
     Active Substance: ESCITALOPRAM OXALATE
     Indication: DYSPHONIA
     Dosage: 10 MILLIGRAM, QD
     Route: 065
  3. NORMAL SALINE [Concomitant]
     Active Substance: SODIUM CHLORIDE
     Indication: VEHICLE SOLUTION USE
     Dosage: 20CC
     Route: 065
  4. LORAZEPAM. [Concomitant]
     Active Substance: LORAZEPAM
     Indication: DYSPHONIA
     Dosage: UNK, BOLUS DOSE OF 4 MG WAS GIVEN IV FOLLOWED BY 2 MG EVERY 15 MINUTES AND AFTER 60 MINUTES NO FURTH
     Route: 065

REACTIONS (1)
  - Drug ineffective [Unknown]
